FAERS Safety Report 7521977-1 (Version None)
Quarter: 2011Q2

REPORT INFORMATION
  Report Type: 
  Country: None (occurrence: None)
  Receive Date: 20110603
  Receipt Date: 20110525
  Transmission Date: 20111010
  Serious: Yes (Other)
  Sender: FDA-Public Use
  Company Number: US-NOVOPROD-328862

PATIENT
  Sex: Female
  Weight: 90.703 kg

DRUGS (7)
  1. VALIUM [Concomitant]
     Indication: MUSCLE SPASMS
  2. LEVEMIR [Suspect]
     Indication: TYPE 2 DIABETES MELLITUS
     Dosage: 30 U, QHS
     Route: 058
     Dates: start: 20110301, end: 20110518
  3. NORCO [Concomitant]
     Indication: MUSCLE SPASMS
  4. VALIUM [Concomitant]
     Indication: BACK PAIN
     Dosage: UNK, PRN QD
     Route: 048
     Dates: start: 20110201
  5. NORCO [Concomitant]
     Indication: NERVE INJURY
  6. VALIUM [Concomitant]
     Indication: NERVE INJURY
  7. NORCO [Concomitant]
     Indication: BACK PAIN
     Dosage: UNK, PRN QD
     Route: 048
     Dates: start: 20110201

REACTIONS (5)
  - CONFUSIONAL STATE [None]
  - DISORIENTATION [None]
  - DRUG INEFFECTIVE [None]
  - BLOOD GLUCOSE INCREASED [None]
  - GLYCOSYLATED HAEMOGLOBIN INCREASED [None]
